FAERS Safety Report 25020773 (Version 2)
Quarter: 2025Q3

REPORT INFORMATION
  Report Type: Spontaneous
  Country: US (occurrence: US)
  Receive Date: 20250227
  Receipt Date: 20250809
  Transmission Date: 20251020
  Serious: Yes (Other)
  Sender: ALEXION PHARMACEUTICALS
  Company Number: US-ASTRAZENECA-202502USA019669US

PATIENT
  Sex: Female

DRUGS (3)
  1. FASLODEX [Suspect]
     Active Substance: FULVESTRANT
     Route: 065
  2. FASLODEX [Suspect]
     Active Substance: FULVESTRANT
  3. IBRANCE [Suspect]
     Active Substance: PALBOCICLIB
     Route: 065

REACTIONS (14)
  - Cataract [Unknown]
  - Pyrexia [Unknown]
  - Hyperhidrosis [Unknown]
  - Pain [Unknown]
  - Back pain [Unknown]
  - Sleep disorder [Unknown]
  - Anxiety [Unknown]
  - Sciatica [Unknown]
  - Pain in extremity [Unknown]
  - Arthralgia [Unknown]
  - Musculoskeletal pain [Unknown]
  - Influenza [Unknown]
  - Neck pain [Unknown]
  - Malignant neoplasm progression [Unknown]
